FAERS Safety Report 4476037-3 (Version None)
Quarter: 2004Q3

REPORT INFORMATION
  Report Type: 
  Country: None (occurrence: None)
  Receive Date: 20040923
  Receipt Date: 20040618
  Transmission Date: 20050211
  Serious: No
  Sender: FDA-Public Use
  Company Number: USA040670478

PATIENT
  Age: 61 Year
  Sex: Female
  Weight: 28 kg

DRUGS (7)
  1. FORTEO [Suspect]
     Indication: SPINAL DISORDER
     Dosage: 20 UG/1 DAY
     Dates: start: 20040524
  2. RALOXIFENE HCL [Suspect]
     Dosage: 60 MG/1 DAY
     Dates: start: 19990101
  3. LEVOXYL [Concomitant]
  4. CALTRATE 600 PLUS VITAMIN D [Concomitant]
  5. TUMS (CALCIUM CARBONATE) [Concomitant]
  6. MULTIVITAMIN [Concomitant]
  7. FOSAMAX [Concomitant]

REACTIONS (2)
  - BONE DENSITY DECREASED [None]
  - ERYTHEMA [None]
